FAERS Safety Report 18877852 (Version 1)
Quarter: 2021Q1

REPORT INFORMATION
  Report Type: Spontaneous
  Country: US (occurrence: US)
  Receive Date: 20210211
  Receipt Date: 20210211
  Transmission Date: 20210420
  Serious: Yes (Hospitalization)
  Sender: FDA-Public Use
  Company Number: US-MYLANLABS-2021M1008465

PATIENT
  Age: 39 Year
  Sex: Female

DRUGS (1)
  1. TEMOZOLOMIDE. [Suspect]
     Active Substance: TEMOZOLOMIDE
     Indication: ASTROCYTOMA
     Dosage: 150?200 MG/M2 X 5/28 DAYS (RECEIVED 6 CYCLES)
     Route: 065

REACTIONS (1)
  - COVID-19 [Recovered/Resolved]
